FAERS Safety Report 4359637-0 (Version None)
Quarter: 2004Q2

REPORT INFORMATION
  Report Type: 
  Country: None (occurrence: None)
  Receive Date: 20040513
  Receipt Date: 20040419
  Transmission Date: 20050107
  Serious: Yes (Hospitalization)
  Sender: FDA-Public Use
  Company Number: 04P-087-0257924-00

PATIENT
  Age: 55 Year
  Sex: Female

DRUGS (7)
  1. EURODIN (PROSOM) (ESTAZOLAM)  (ESTAZOLAM) [Suspect]
     Indication: INSOMNIA
     Dosage: SEE IMAGE
     Route: 048
     Dates: end: 20040405
  2. EURODIN (PROSOM) (ESTAZOLAM)  (ESTAZOLAM) [Suspect]
     Indication: INSOMNIA
     Dosage: SEE IMAGE
     Route: 048
     Dates: start: 20040101
  3. LEVOFLOXACIN [Suspect]
     Indication: COUGH
     Dosage: PER ORAL
     Route: 048
     Dates: start: 20040405
  4. CILNIDIPINE [Concomitant]
  5. DOXAZOSIN MESYLATE [Concomitant]
  6. CALCITRIOL [Concomitant]
  7. AGENTS FOR PEPTIC ULCER [Concomitant]

REACTIONS (7)
  - COUGH [None]
  - DEPRESSED LEVEL OF CONSCIOUSNESS [None]
  - ELECTROLYTE IMBALANCE [None]
  - HYPOKALAEMIA [None]
  - HYPONATRAEMIA [None]
  - PYREXIA [None]
  - SYSTEMIC LUPUS ERYTHEMATOSUS [None]
